FAERS Safety Report 10022037 (Version 2)
Quarter: 2014Q1

REPORT INFORMATION
  Report Type: Report from Study
  Country: IN (occurrence: IN)
  Receive Date: 20140319
  Receipt Date: 20140322
  Transmission Date: 20141002
  Serious: Yes (Hospitalization, Other)
  Sender: FDA-Public Use
  Company Number: PHHY2014IN031797

PATIENT
  Age: 32 Year
  Sex: Male

DRUGS (4)
  1. SIMULECT [Suspect]
     Indication: RENAL TRANSPLANT
     Dosage: 20 MG, FIRST DOSE
     Route: 042
     Dates: start: 20140201
  2. SIMULECT [Suspect]
     Dosage: 20 MG, SECOND DOSE
     Route: 042
     Dates: start: 20140205, end: 20140205
  3. PROGRAF [Concomitant]
     Indication: RENAL TRANSPLANT
     Dosage: 6.0 MG, BID
     Route: 048
     Dates: start: 20140102, end: 20140215
  4. MYCEPT [Concomitant]
     Indication: RENAL TRANSPLANT
     Dosage: 720 MG, BID
     Dates: start: 20140201, end: 20140215

REACTIONS (2)
  - Renal artery thrombosis [Recovering/Resolving]
  - Kidney transplant rejection [Recovering/Resolving]
